FAERS Safety Report 4911382-6 (Version None)
Quarter: 2006Q1

REPORT INFORMATION
  Report Type: 
  Country: None (occurrence: None)
  Receive Date: 20060113
  Receipt Date: 20050913
  Transmission Date: 20060701
  Serious: Yes (Other)
  Sender: FDA-Public Use
  Company Number: HQWYE480815SEP05

PATIENT
  Age: 50 Year
  Sex: Female

DRUGS (1)
  1. PREMPRO [Suspect]
     Indication: HORMONE REPLACEMENT THERAPY

REACTIONS (2)
  - BREAST CANCER [None]
  - MYOCARDIAL INFARCTION [None]
